FAERS Safety Report 4796855-1 (Version None)
Quarter: 2005Q3

REPORT INFORMATION
  Report Type: 
  Country: None (occurrence: None)
  Receive Date: 20050916
  Receipt Date: 20041214
  Transmission Date: 20060218
  Serious: Yes (Hospitalization)
  Sender: FDA-Public Use
  Company Number: US-JNJFOC-20041206584

PATIENT
  Sex: 0

DRUGS (1)
  1. TOPAMAX [Suspect]
     Dosage: 25 MG, 1 IN 1 DAY, ORAL
     Route: 048

REACTIONS (3)
  - BLOOD BICARBONATE DECREASED [None]
  - BLOOD POTASSIUM DECREASED [None]
  - BLOOD SODIUM DECREASED [None]
